FAERS Safety Report 20460821 (Version 1)
Quarter: 2022Q1

REPORT INFORMATION
  Report Type: Spontaneous
  Country: JP (occurrence: None)
  Receive Date: 20220211
  Receipt Date: 20220211
  Transmission Date: 20220423
  Serious: Yes (Other)
  Sender: FDA-Public Use
  Company Number: 2022A061201

PATIENT

DRUGS (1)
  1. SYMBICORT [Suspect]
     Active Substance: BUDESONIDE\FORMOTEROL FUMARATE DIHYDRATE
     Indication: Cough
     Dosage: DOSE UNKNOWN UNKNOWN
     Route: 055

REACTIONS (4)
  - Suspected COVID-19 [Unknown]
  - Drug ineffective [Unknown]
  - Device malfunction [Unknown]
  - Off label use [Unknown]
